FAERS Safety Report 12246768 (Version 1)
Quarter: 2016Q2

REPORT INFORMATION
  Report Type: Other
  Country: FR (occurrence: FR)
  Receive Date: 20160407
  Receipt Date: 20160407
  Transmission Date: 20160815
  Serious: Yes (Other)
  Sender: FDA-Public Use
  Company Number: FR-SYMPLMED PHARMACEUTICALS-2016SYMPLMED000181

PATIENT

DRUGS (2)
  1. COVERSYL [Suspect]
     Active Substance: PERINDOPRIL
     Indication: DUCHENNE MUSCULAR DYSTROPHY
     Dosage: 5 MG, QD
     Route: 048
     Dates: start: 200909
  2. COVERSYL [Suspect]
     Active Substance: PERINDOPRIL
     Indication: OFF LABEL USE

REACTIONS (2)
  - Subileus [Unknown]
  - Pancreatitis acute [Recovered/Resolved]

NARRATIVE: CASE EVENT DATE: 20160215
